FAERS Safety Report 5038985-5 (Version None)
Quarter: 2006Q2

REPORT INFORMATION
  Report Type: 
  Country: None (occurrence: None)
  Receive Date: 20060601
  Receipt Date: 20060213
  Transmission Date: 20061013
  Serious: No
  Sender: FDA-Public Use
  Company Number: 2005PV000972

PATIENT
  Age: 76 Year
  Sex: Female
  Weight: 90.7194 kg

DRUGS (21)
  1. BYETTA [Suspect]
     Indication: DIABETES MELLITUS NON-INSULIN-DEPENDENT
     Dosage: SEE IMAGE
     Route: 058
     Dates: start: 20050801, end: 20060205
  2. BYETTA [Suspect]
     Indication: DIABETES MELLITUS NON-INSULIN-DEPENDENT
     Dosage: SEE IMAGE
     Route: 058
     Dates: start: 20060206
  3. METFORMIN [Concomitant]
  4. HUMULIN 70/30 [Concomitant]
  5. AMARYL [Concomitant]
  6. AMBIEN [Concomitant]
  7. ATENOLOL [Concomitant]
  8. AZPOT [Concomitant]
  9. COLCHICINE [Concomitant]
  10. HYZAAR [Concomitant]
  11. FLOVENT [Concomitant]
  12. GABAPENTIN [Concomitant]
  13. LEVOTHROID [Concomitant]
  14. SPIRIVA [Concomitant]
  15. XALATAN [Concomitant]
  16. ASPIRIN [Concomitant]
  17. VITAMIN B-12 [Concomitant]
  18. FOLIC ACID [Concomitant]
  19. VITAMIN B6 [Concomitant]
  20. ASCORBIC ACID [Concomitant]
  21. PEPCID [Concomitant]

REACTIONS (6)
  - BLOOD GLUCOSE INCREASED [None]
  - DIFFICULTY IN WALKING [None]
  - DIZZINESS [None]
  - FATIGUE [None]
  - HEADACHE [None]
  - INJECTION SITE BRUISING [None]
